FAERS Safety Report 13813964 (Version 2)
Quarter: 2018Q1

REPORT INFORMATION
  Report Type: Spontaneous
  Country: US (occurrence: US)
  Receive Date: 20170731
  Receipt Date: 20180322
  Transmission Date: 20180508
  Serious: No
  Sender: FDA-Public Use
  Company Number: US-PFIZER INC-2017328718

PATIENT
  Age: 67 Year
  Sex: Female
  Weight: 51.7 kg

DRUGS (2)
  1. IBRANCE [Suspect]
     Active Substance: PALBOCICLIB
     Indication: BREAST CANCER
     Dosage: 75 MG, CYCLIC (D 1-121 Q 28 DAYS)
     Route: 048
     Dates: start: 20170706
  2. IBRANCE [Suspect]
     Active Substance: PALBOCICLIB
     Indication: BREAST CANCER METASTATIC
     Dosage: 125 MG, CYCLIC (D 1-21Q 28DAYS)
     Route: 048
     Dates: start: 20170706

REACTIONS (1)
  - Full blood count decreased [Unknown]
